FAERS Safety Report 7854291-5 (Version None)
Quarter: 2011Q4

REPORT INFORMATION
  Report Type: 
  Country: None (occurrence: None)
  Receive Date: 20111026
  Receipt Date: 20111019
  Transmission Date: 20120403
  Serious: Yes (Death)
  Sender: FDA-Public Use
  Company Number: CH-ELI_LILLY_AND_COMPANY-CH201110005336

PATIENT
  Sex: Female
  Weight: 55 kg

DRUGS (1)
  1. EFFIENT [Suspect]
     Indication: ACUTE CORONARY SYNDROME
     Dosage: 60 MG, LOADING DOSE
     Dates: start: 20110725, end: 20110725

REACTIONS (1)
  - SUDDEN DEATH [None]
